FAERS Safety Report 7340922-5 (Version None)
Quarter: 2011Q1

REPORT INFORMATION
  Report Type: 
  Country: None (occurrence: None)
  Receive Date: 20110309
  Receipt Date: 20100520
  Transmission Date: 20110831
  Serious: No
  Sender: FDA-Public Use
  Company Number: US-ABBOTT-10P-163-0647071-00

PATIENT
  Age: 46 Year
  Sex: Female

DRUGS (5)
  1. LUPRON DEPOT [Suspect]
     Indication: UTERINE LEIOMYOMA
     Dates: start: 20100422, end: 20100518
  2. LUPRON DEPOT [Suspect]
     Indication: UTERINE LEIOMYOMA
     Route: 050
     Dates: start: 20091213, end: 20100301
  3. LUPRON DEPOT [Suspect]
     Indication: MENORRHAGIA
  4. LUPRON DEPOT [Suspect]
  5. LUPRON DEPOT [Suspect]
     Indication: MENORRHAGIA

REACTIONS (2)
  - INCORRECT DOSE ADMINISTERED [None]
  - OVERDOSE [None]
